FAERS Safety Report 5154552-7 (Version None)
Quarter: 2006Q4

REPORT INFORMATION
  Report Type: 
  Country: None (occurrence: None)
  Receive Date: 20061114
  Receipt Date: 20061102
  Transmission Date: 20070319
  Serious: Yes (Hospitalization)
  Sender: FDA-Public Use
  Company Number: 2006-05678

PATIENT
  Age: 29 Year
  Sex: Female

DRUGS (1)
  1. TRELSTAR DEPOT (WATSON LABORATORIES)(TRIPTORELIN PAMOATE) INJECTABLE S [Suspect]
     Indication: INFERTILITY
     Dosage: SUBCUTANEOUS
     Route: 058

REACTIONS (3)
  - HYDROTHORAX [None]
  - OVARIAN HYPERSTIMULATION SYNDROME [None]
  - RESPIRATORY DISTRESS [None]
